FAERS Safety Report 12643822 (Version 1)
Quarter: 2016Q3

REPORT INFORMATION
  Report Type: Spontaneous
  Country: CA (occurrence: CA)
  Receive Date: 20160811
  Receipt Date: 20160811
  Transmission Date: 20161109
  Serious: Yes (Death, Hospitalization, Other)
  Sender: FDA-Public Use
  Company Number: CA-AMGEN-CANSP2016101548

PATIENT
  Age: 92 Year
  Sex: Male

DRUGS (1)
  1. XGEVA [Suspect]
     Active Substance: DENOSUMAB
     Indication: PRODUCT USED FOR UNKNOWN INDICATION
     Dosage: UNK
     Route: 065
     Dates: start: 20160426

REACTIONS (5)
  - Hip fracture [Unknown]
  - Hypomagnesaemia [Not Recovered/Not Resolved]
  - Hospitalisation [Unknown]
  - Renal failure [Unknown]
  - Prostate cancer [Fatal]

NARRATIVE: CASE EVENT DATE: 201605
